FAERS Safety Report 13629412 (Version 1)
Quarter: 2017Q2

REPORT INFORMATION
  Report Type: Spontaneous
  Country: US (occurrence: US)
  Receive Date: 20170531
  Receipt Date: 20170531
  Transmission Date: 20170830
  Serious: No
  Sender: FDA-Public Use
  Company Number: US-ASTELLAS-1172263

PATIENT
  Age: 76 Year
  Sex: Female
  Weight: 42.22 kg

DRUGS (3)
  1. TARCEVA [Suspect]
     Active Substance: ERLOTINIB HYDROCHLORIDE
     Indication: NON-SMALL CELL LUNG CANCER
     Route: 048
     Dates: start: 20121015, end: 20121116
  2. TARCEVA [Suspect]
     Active Substance: ERLOTINIB HYDROCHLORIDE
     Route: 048
     Dates: start: 20121116
  3. TARCEVA [Suspect]
     Active Substance: ERLOTINIB HYDROCHLORIDE
     Route: 065

REACTIONS (12)
  - Ocular hyperaemia [Not Recovered/Not Resolved]
  - Rash [Recovered/Resolved]
  - Nausea [Recovered/Resolved]
  - Oral mucosal eruption [Recovered/Resolved]
  - Weight decreased [Not Recovered/Not Resolved]
  - Rash [Recovered/Resolved]
  - Vomiting [Recovered/Resolved]
  - Rash generalised [Recovering/Resolving]
  - Decreased appetite [Not Recovered/Not Resolved]
  - Ageusia [Unknown]
  - Eyelid rash [Recovered/Resolved]
  - Eating disorder [Unknown]

NARRATIVE: CASE EVENT DATE: 201211
